FAERS Safety Report 13345567 (Version 5)
Quarter: 2017Q2

REPORT INFORMATION
  Report Type: Spontaneous
  Country: SE (occurrence: SE)
  Receive Date: 20170317
  Receipt Date: 20170421
  Transmission Date: 20170830
  Serious: Yes (Disabling, Other)
  Sender: FDA-Public Use
  Company Number: SE-REGENERON PHARMACEUTICALS, INC.-2017-13246

PATIENT

DRUGS (4)
  1. SALAZOPYRIN [Concomitant]
     Active Substance: SULFASALAZINE
     Indication: ANKYLOSING SPONDYLITIS
  2. REMICADE [Concomitant]
     Active Substance: INFLIXIMAB
     Indication: ANKYLOSING SPONDYLITIS
  3. EYLEA [Suspect]
     Active Substance: AFLIBERCEPT
     Indication: RETINAL VEIN OCCLUSION
     Dosage: UNK
     Route: 031
     Dates: start: 20160310
  4. EYLEA [Suspect]
     Active Substance: AFLIBERCEPT
     Dosage: (7TH INJECTION)
     Dates: start: 20170213, end: 20170213

REACTIONS (4)
  - Photophobia [Unknown]
  - Blindness [Recovering/Resolving]
  - Endophthalmitis [Recovering/Resolving]
  - Injection site irritation [Unknown]

NARRATIVE: CASE EVENT DATE: 20170213
